FAERS Safety Report 19481878 (Version 1)
Quarter: 2021Q3

REPORT INFORMATION
  Report Type: Spontaneous
  Country: PL (occurrence: PL)
  Receive Date: 20210701
  Receipt Date: 20210701
  Transmission Date: 20211014
  Serious: Yes (Death)
  Sender: FDA-Public Use
  Company Number: PL-ACCORD-230121

PATIENT
  Age: 60 Year
  Sex: Female
  Weight: 72 kg

DRUGS (6)
  1. DEXAMETHASONE. [Concomitant]
     Active Substance: DEXAMETHASONE
     Indication: COLON CANCER
     Route: 042
     Dates: start: 20191216, end: 20210322
  2. FLUOROURACIL. [Concomitant]
     Active Substance: FLUOROURACIL
     Indication: COLON CANCER
     Route: 042
     Dates: start: 20191230, end: 20210322
  3. ONDANSETRON [Concomitant]
     Active Substance: ONDANSETRON
     Indication: COLON CANCER
     Route: 042
     Dates: start: 20191216, end: 20210322
  4. CLEMASTINE [Concomitant]
     Active Substance: CLEMASTINE
     Indication: COLON CANCER
     Route: 042
     Dates: start: 20101023, end: 20210322
  5. TRANSTEC [Concomitant]
     Active Substance: BUPRENORPHINE
     Indication: COLON CANCER
     Dosage: 35 MCG/H
     Route: 058
     Dates: start: 20191230, end: 20210322
  6. OXALIPLATIN. [Suspect]
     Active Substance: OXALIPLATIN
     Indication: COLON CANCER
     Route: 042
     Dates: start: 20201023, end: 20210322

REACTIONS (9)
  - Cardiac arrest [Fatal]
  - Anxiety [Fatal]
  - Dyspnoea [Fatal]
  - Hypertension [Fatal]
  - Erythema [Fatal]
  - Cold sweat [Fatal]
  - Malaise [Fatal]
  - Sinus tachycardia [Fatal]
  - Abdominal pain upper [Fatal]

NARRATIVE: CASE EVENT DATE: 20210322
